FAERS Safety Report 18174375 (Version 1)
Quarter: 2020Q3

REPORT INFORMATION
  Report Type: Spontaneous
  Country: CN (occurrence: CN)
  Receive Date: 20200820
  Receipt Date: 20200820
  Transmission Date: 20201103
  Serious: Yes (Hospitalization)
  Sender: FDA-Public Use
  Company Number: CN-ELI_LILLY_AND_COMPANY-CN202008005080

PATIENT
  Sex: Female

DRUGS (1)
  1. FORSTEO 250UG/ML [Suspect]
     Active Substance: TERIPARATIDE
     Indication: OSTEOPOROSIS
     Dosage: 20 UG, DAILY
     Route: 058
     Dates: start: 20200801, end: 20200803

REACTIONS (8)
  - Restlessness [Unknown]
  - Pain [Unknown]
  - Mobility decreased [Unknown]
  - Feeding disorder [Unknown]
  - Gait disturbance [Unknown]
  - Sleep disorder due to general medical condition, insomnia type [Unknown]
  - Confusional state [Unknown]
  - Pyrexia [Recovered/Resolved]

NARRATIVE: CASE EVENT DATE: 20200802
